FAERS Safety Report 10229362 (Version 1)
Quarter: 2014Q2

REPORT INFORMATION
  Report Type: Spontaneous
  Country: US (occurrence: US)
  Receive Date: 20140611
  Receipt Date: 20140611
  Transmission Date: 20141212
  Serious: Yes (Other)
  Sender: FDA-Public Use
  Company Number: US-MYLANLABS-2014S1013156

PATIENT
  Sex: Male

DRUGS (1)
  1. VERAPAMIL HYDROCHLORIDE EXTENDED-RELEASE CAPSULES [Suspect]
     Indication: BLOOD PRESSURE INCREASED
     Dosage: @ 2:15AM
     Route: 048
     Dates: start: 20140602

REACTIONS (2)
  - Wrong drug administered [Recovered/Resolved]
  - Incorrect dose administered [Recovered/Resolved]
